FAERS Safety Report 8376014-6 (Version None)
Quarter: 2012Q2

REPORT INFORMATION
  Report Type: 
  Country: None (occurrence: None)
  Receive Date: 20120522
  Receipt Date: 20120514
  Transmission Date: 20120825
  Serious: Yes (Other)
  Sender: FDA-Public Use
  Company Number: PHEH2011US02625

PATIENT
  Sex: Female
  Weight: 73.469 kg

DRUGS (9)
  1. NITROFURANTOIN [Concomitant]
  2. BACLOFEN [Concomitant]
     Dosage: 10 MG, UNK
  3. GILENYA [Suspect]
     Indication: MULTIPLE SCLEROSIS
     Dosage: 1 DF, QD
     Route: 048
     Dates: start: 20110822
  4. SUMATRIPTAN [Concomitant]
  5. BACLOFEN [Concomitant]
     Dosage: 20 MG, UNK
  6. FAMPRIDINE [Concomitant]
  7. MULTI-VITAMINS [Concomitant]
  8. VITAMIN B COMPLEX CAP [Concomitant]
  9. VITAMIN D [Concomitant]

REACTIONS (5)
  - CEREBELLAR ATAXIA [None]
  - BLOOD PRESSURE DECREASED [None]
  - BALANCE DISORDER [None]
  - ULTRASOUND LIVER ABNORMAL [None]
  - GAIT DISTURBANCE [None]
